FAERS Safety Report 19291580 (Version 1)
Quarter: 2021Q2

REPORT INFORMATION
  Report Type: Report from Study
  Country: None (occurrence: US)
  Receive Date: 20210523
  Receipt Date: 20210523
  Transmission Date: 20210717
  Serious: Yes (Hospitalization, Other)
  Sender: FDA-Public Use
  Company Number: US-ABBVIE-21K-163-3914580-00

PATIENT
  Sex: Male

DRUGS (3)
  1. HUMIRA [Suspect]
     Active Substance: ADALIMUMAB
     Indication: PRODUCT USED FOR UNKNOWN INDICATION
     Route: 058
  2. METHOTREXATE. [Concomitant]
     Active Substance: METHOTREXATE
     Indication: PRODUCT USED FOR UNKNOWN INDICATION
  3. REMICADE [Concomitant]
     Active Substance: INFLIXIMAB
     Indication: PRODUCT USED FOR UNKNOWN INDICATION

REACTIONS (15)
  - Hypotension [Unknown]
  - Laboratory test abnormal [Unknown]
  - Rheumatoid arthritis [Unknown]
  - Echocardiogram [Unknown]
  - White blood cell count abnormal [Unknown]
  - Red blood cell count abnormal [Unknown]
  - Mass [Unknown]
  - Skin weeping [Unknown]
  - Fall [Unknown]
  - Upper limb fracture [Unknown]
  - Heart rate increased [Unknown]
  - Haemolysis [Unknown]
  - Wound complication [Unknown]
  - Wound [Unknown]
  - Therapeutic product effect decreased [Unknown]
